FAERS Safety Report 8408205-X (Version None)
Quarter: 2012Q2

REPORT INFORMATION
  Report Type: 
  Country: None (occurrence: None)
  Receive Date: 20120604
  Receipt Date: 20120524
  Transmission Date: 20120825
  Serious: Yes (Other)
  Sender: FDA-Public Use
  Company Number: CO-ELI_LILLY_AND_COMPANY-CO201205008582

PATIENT
  Age: 78 Year
  Sex: Female

DRUGS (9)
  1. AMLODIPINE [Concomitant]
  2. FORTEO [Suspect]
     Indication: OSTEOPOROSIS
     Dosage: 20 UG, QD
     Route: 058
     Dates: start: 20120511, end: 20120521
  3. CALCIUM CARBONATE [Concomitant]
  4. METOPROLOL TARTRATE [Concomitant]
  5. CALCITRIOL [Concomitant]
  6. EZETIMIBE [Concomitant]
  7. ENALAPRIL MALEATE [Concomitant]
  8. CALCIUM W/VITAMIN D NOS [Concomitant]
     Indication: SUPPLEMENTATION THERAPY
  9. SIMVASTATIN [Concomitant]

REACTIONS (8)
  - STENT PLACEMENT [None]
  - OROPHARYNGEAL PAIN [None]
  - VEIN PAIN [None]
  - SPINAL PAIN [None]
  - TACHYCARDIA [None]
  - PAIN [None]
  - PAIN IN EXTREMITY [None]
  - PALPITATIONS [None]
